FAERS Safety Report 16503990 (Version 1)
Quarter: 2019Q3

REPORT INFORMATION
  Report Type: Spontaneous
  Country: US (occurrence: US)
  Receive Date: 20190701
  Receipt Date: 20190701
  Transmission Date: 20191004
  Serious: No
  Sender: FDA-Public Use
  Company Number: US-CASPER PHARMA LLC-2018US000247

PATIENT
  Sex: Female

DRUGS (1)
  1. NEOMYCIN, POLYMYXIN B, BACITRACIN ZINC [Suspect]
     Active Substance: BACITRACIN ZINC\NEOMYCIN\POLYMYXIN B SULFATE
     Indication: CHEST INJURY

REACTIONS (1)
  - Drug ineffective [Unknown]
